FAERS Safety Report 22258670 (Version 1)
Quarter: 2023Q2

REPORT INFORMATION
  Report Type: Spontaneous
  Country: CN (occurrence: CN)
  Receive Date: 20230427
  Receipt Date: 20230427
  Transmission Date: 20230721
  Serious: Yes (Hospitalization, Other)
  Sender: FDA-Public Use
  Company Number: CN-GLAXOSMITHKLINE-CN2023APC059929

PATIENT

DRUGS (1)
  1. SERETIDE [Suspect]
     Active Substance: FLUTICASONE PROPIONATE\SALMETEROL XINAFOATE
     Indication: Chronic obstructive pulmonary disease
     Dosage: 1 PUFF(S), BID (50/250 UG 60 INHALATIONS)
     Dates: start: 202204

REACTIONS (6)
  - Disease recurrence [Recovered/Resolved]
  - Pulmonary arterial hypertension [Recovering/Resolving]
  - Malaise [Unknown]
  - Wrong technique in device usage process [Unknown]
  - Off label use [Unknown]
  - Inappropriate schedule of product administration [Unknown]
